FAERS Safety Report 7812690-1 (Version None)
Quarter: 2011Q4

REPORT INFORMATION
  Report Type: 
  Country: None (occurrence: None)
  Receive Date: 20111013
  Receipt Date: 20110929
  Transmission Date: 20120403
  Serious: Yes (Hospitalization)
  Sender: FDA-Public Use
  Company Number: CA-ELI_LILLY_AND_COMPANY-CA201110000301

PATIENT
  Age: 65 Year
  Sex: Female

DRUGS (8)
  1. CLONAZEPAM [Concomitant]
  2. MICARDIS [Concomitant]
  3. CYMBALTA [Suspect]
     Dosage: 60 MG, UNK
  4. THYROID THERAPY [Concomitant]
  5. CYMBALTA [Suspect]
     Dosage: 30 MG, UNK
  6. TRAMADOL HYDROCHLORIDE/ACETAMINOPHEN [Concomitant]
  7. HYDROCHLOROTHIAZIDE [Concomitant]
  8. TOPIRAMATE [Concomitant]

REACTIONS (1)
  - ANAPHYLACTIC REACTION [None]
